FAERS Safety Report 6703204-8 (Version None)
Quarter: 2010Q2

REPORT INFORMATION
  Report Type: 
  Country: None (occurrence: None)
  Receive Date: 20100430
  Receipt Date: 20100416
  Transmission Date: 20101027
  Serious: Yes (Hospitalization)
  Sender: FDA-Public Use
  Company Number: US-RANBAXY-2010US-33252

PATIENT

DRUGS (17)
  1. GANCICLOVIR [Suspect]
     Indication: ANTIVIRAL PROPHYLAXIS
     Dosage: 500 MG, 3 IN 1 D
     Route: 048
     Dates: start: 20080724, end: 20080729
  2. MARIBAVIR PLACEBO [Suspect]
     Indication: PROPHYLAXIS AGAINST TRANSPLANT REJECTION
     Dosage: 100 MG, 2 IN 1 D
     Route: 048
     Dates: start: 20080724, end: 20080729
  3. ACYCLOVIR PLACEBO [Suspect]
     Indication: ANTIVIRAL PROPHYLAXIS
     Dosage: 400 MG 2 IN 1 D
     Route: 048
     Dates: start: 20080724, end: 20080729
  4. DEXOFEN [Concomitant]
     Indication: PROCEDURAL PAIN
     Route: 065
  5. HUMULIN R [Concomitant]
     Indication: PROPHYLAXIS
     Route: 065
  6. METOPROLOL HEXAL [Concomitant]
     Indication: HYPERTENSION
     Route: 065
  7. MYCOSTATIN [Concomitant]
     Indication: ANTIFUNGAL PROPHYLAXIS
     Route: 065
  8. NOVOMIX 30 FLEXPEN [Concomitant]
     Indication: DIABETES MELLITUS
     Route: 065
  9. OMEPRAZOLE [Concomitant]
     Indication: PROPHYLAXIS AGAINST GASTROINTESTINAL ULCER
     Route: 065
  10. OXYCODONE HCL [Concomitant]
     Indication: PROCEDURAL PAIN
  11. PREDNISOLONE [Concomitant]
     Indication: PROPHYLAXIS AGAINST TRANSPLANT REJECTION
     Route: 065
  12. PROGRAF [Concomitant]
     Indication: TRANSPLANT REJECTION
  13. PIPERACILLIN AND TAZOBACTAM [Concomitant]
     Indication: INFECTION
  14. TROMBYL [Concomitant]
     Indication: THROMBOSIS PROPHYLAXIS
  15. VANCOMYCIN [Concomitant]
     Indication: URINARY TRACT INFECTION
     Route: 065
  16. BACTRIM [Concomitant]
     Indication: PROPHYLAXIS
  17. ENALAPRIL MALEATE [Concomitant]
     Indication: HYPERTENSION
     Route: 065

REACTIONS (3)
  - CEREBROVASCULAR ACCIDENT [None]
  - HEPATIC ENZYME INCREASED [None]
  - LEUKOPENIA [None]
